FAERS Safety Report 7067122 (Version 2)
Quarter: 2014Q3

REPORT INFORMATION
  Report Type: Spontaneous
  Country: US (occurrence: None)
  Receive Date: 20090723
  Receipt Date: 20140924
  Transmission Date: 20150326
  Serious: Yes (Hospitalization, Other)
  Sender: FDA-Public Use
  Company Number: 2009S1005735

PATIENT
  Sex: Female

DRUGS (3)
  1. LISINOPRIL. [Concomitant]
     Active Substance: LISINOPRIL
  2. PHOSPHO-SODA [Suspect]
     Active Substance: SODIUM PHOSPHATE, DIBASIC\SODIUM PHOSPHATE, MONOBASIC
     Indication: COLONOSCOPY
     Route: 048
     Dates: start: 20080804
  3. DULCOLAX (BISACODYL) [Suspect]
     Active Substance: BISACODYL
     Indication: COLONOSCOPY

REACTIONS (15)
  - Computerised tomogram abnormal [None]
  - Nausea [None]
  - Intestinal mass [None]
  - Renal failure acute [None]
  - Fluid intake reduced [None]
  - Incorrect drug administration duration [None]
  - Blood creatinine increased [None]
  - Blood calcium increased [None]
  - Blood potassium increased [None]
  - Dehydration [None]
  - Abdominal discomfort [None]
  - Aphagia [None]
  - Hyponatraemia [None]
  - Dysgeusia [None]
  - Anaemia of chronic disease [None]

NARRATIVE: CASE EVENT DATE: 20080820
